FAERS Safety Report 16834676 (Version 1)
Quarter: 2019Q3

REPORT INFORMATION
  Report Type: Spontaneous
  Country: US (occurrence: US)
  Receive Date: 20190920
  Receipt Date: 20190920
  Transmission Date: 20191005
  Serious: No
  Sender: FDA-Public Use
  Company Number: US-TEVA-2019-US-1110174

PATIENT
  Age: 67 Year

DRUGS (1)
  1. CLONAZEPAM TEVA [Suspect]
     Active Substance: CLONAZEPAM
     Indication: RESTLESSNESS
     Dosage: THERAPY DATES: SINCE YEARS
     Route: 065

REACTIONS (1)
  - Drug ineffective [Unknown]
